FAERS Safety Report 8871156 (Version 1)
Quarter: 2012Q4

REPORT INFORMATION
  Report Type: 
  Country: GR (occurrence: GR)
  Receive Date: 20121029
  Receipt Date: 20121029
  Transmission Date: 20130627
  Serious: Yes (Other)
  Sender: FDA-Public Use
  Company Number: GR-ROCHE-1150128

PATIENT
  Age: 72 Year
  Sex: Female

DRUGS (2)
  1. LUCENTIS [Suspect]
     Indication: PRODUCT USED FOR UNKNOWN INDICATION
     Route: 050
  2. ACETAZOLAMIDE [Concomitant]

REACTIONS (2)
  - Stevens-Johnson syndrome [Unknown]
  - Haemoptysis [Recovered/Resolved]
